FAERS Safety Report 11347237 (Version 1)
Quarter: 2015Q3

REPORT INFORMATION
  Report Type: Spontaneous
  Country: US (occurrence: US)
  Receive Date: 20150803
  Receipt Date: 20150803
  Transmission Date: 20151125
  Serious: No
  Sender: FDA-Public Use
  Company Number: US-ELI_LILLY_AND_COMPANY-US201105001459

PATIENT
  Sex: Female

DRUGS (2)
  1. STRATTERA [Suspect]
     Active Substance: ATOMOXETINE HYDROCHLORIDE
     Indication: ATTENTION DEFICIT/HYPERACTIVITY DISORDER
     Dosage: 80 MG, BID
     Route: 048
  2. STRATTERA [Suspect]
     Active Substance: ATOMOXETINE HYDROCHLORIDE
     Dosage: 40 MG, BID

REACTIONS (5)
  - Nausea [Not Recovered/Not Resolved]
  - Overdose [Recovered/Resolved]
  - Intentional product misuse [Unknown]
  - Flatulence [Unknown]
  - Eructation [Unknown]
